FAERS Safety Report 8436057 (Version 2)
Quarter: 2013Q3

REPORT INFORMATION
  Report Type: Report from Study
  Country: NL (occurrence: NL)
  Receive Date: 20120301
  Receipt Date: 20130812
  Transmission Date: 20140515
  Serious: Yes (Hospitalization, Other)
  Sender: FDA-Public Use
  Company Number: NL-ABBOTT-12P-114-0907984-00

PATIENT
  Age: 25 Year
  Sex: Female
  Weight: 98 kg

DRUGS (2)
  1. LUCRIN DEPOT 11.25 MG [Suspect]
     Indication: ENDOMETRIOSIS
     Route: 058
     Dates: start: 20111128, end: 20120221
  2. SYMBICORT [Concomitant]
     Indication: ASTHMA
     Dosage: 400/12 1/3 TIMES DAILY
     Route: 055

REACTIONS (9)
  - Pneumonia [Not Recovered/Not Resolved]
  - Dyskinesia [Recovered/Resolved]
  - Hypersensitivity [Recovered/Resolved]
  - Dyspnoea [Recovered/Resolved]
  - Oedema peripheral [Recovered/Resolved]
  - Swelling face [Recovered/Resolved]
  - Weight increased [Recovered/Resolved]
  - Headache [Recovered/Resolved]
  - Hot flush [Recovered/Resolved]
